FAERS Safety Report 13540317 (Version 1)
Quarter: 2017Q2

REPORT INFORMATION
  Report Type: Spontaneous
  Country: US (occurrence: US)
  Receive Date: 20170512
  Receipt Date: 20170512
  Transmission Date: 20170830
  Serious: No
  Sender: FDA-Public Use
  Company Number: GXBR2017US001376

PATIENT
  Sex: Female

DRUGS (4)
  1. DOCETAXEL. [Suspect]
     Active Substance: DOCETAXEL
     Indication: BREAST CANCER STAGE I
     Dosage: UNK DF, UNK
     Route: 065
     Dates: start: 20131002, end: 20131002
  2. DOCETAXEL. [Suspect]
     Active Substance: DOCETAXEL
     Dosage: UNK DF, UNK
     Route: 065
     Dates: start: 20131113, end: 20131113
  3. DOCETAXEL. [Suspect]
     Active Substance: DOCETAXEL
     Dosage: UNK DF, UNK
     Route: 065
     Dates: start: 20131023, end: 20131023
  4. DOCETAXEL HOSPIRA [Suspect]
     Active Substance: DOCETAXEL
     Indication: BREAST CANCER STAGE I
     Dosage: UNK DF, UNK
     Route: 065
     Dates: start: 20130911, end: 20130911

REACTIONS (1)
  - Alopecia [Not Recovered/Not Resolved]
